FAERS Safety Report 4318632-8 (Version None)
Quarter: 2004Q1

REPORT INFORMATION
  Report Type: 
  Country: None (occurrence: None)
  Receive Date: 20040315
  Receipt Date: 20040315
  Transmission Date: 20041129
  Serious: Yes (Other)
  Sender: FDA-Public Use
  Company Number: None

PATIENT
  Age: 49 Year
  Sex: Male

DRUGS (3)
  1. METFORMIN APOTEX ^ER^ 500 MG [Suspect]
     Indication: DIABETES MELLITUS
     Dosage: 2 TABS DAILY
     Dates: start: 20040101, end: 20040310
  2. LIPITOR [Concomitant]
  3. GLUCOTROL XL [Concomitant]

REACTIONS (3)
  - BLOOD GLUCOSE FLUCTUATION [None]
  - DIABETES MELLITUS INADEQUATE CONTROL [None]
  - PHARMACEUTICAL PRODUCT COMPLAINT [None]
